FAERS Safety Report 24238865 (Version 1)
Quarter: 2024Q3

REPORT INFORMATION
  Report Type: Spontaneous
  Country: ES (occurrence: ES)
  Receive Date: 20240822
  Receipt Date: 20240822
  Transmission Date: 20241017
  Serious: Yes (Hospitalization)
  Sender: JOHNSON AND JOHNSON
  Company Number: None

PATIENT
  Age: 54 Year
  Sex: Male
  Weight: 118.6 kg

DRUGS (5)
  1. PALIPERIDONE PALMITATE [Suspect]
     Active Substance: PALIPERIDONE PALMITATE
     Indication: Schizoaffective disorder
     Dosage: 100MG EVERY 28 DAYS TREATMENT START 07/23/2023
     Route: 030
     Dates: start: 20230725, end: 20240712
  2. PALIPERIDONE PALMITATE [Suspect]
     Active Substance: PALIPERIDONE PALMITATE
  3. PALIPERIDONE PALMITATE [Suspect]
     Active Substance: PALIPERIDONE PALMITATE
  4. ZYPREXA [Suspect]
     Active Substance: OLANZAPINE
     Dosage: 20MG EVERY 24 HOURS
     Dates: start: 20120203, end: 20240731
  5. CLONAZEPAM BIOMED [Concomitant]
     Dosage: 2MG EVERY 12 HOURS
     Route: 048
     Dates: start: 20230728, end: 20240731

REACTIONS (4)
  - Hyperthermia [Recovered/Resolved]
  - Rhabdomyolysis [Recovering/Resolving]
  - Acute kidney injury [Recovered/Resolved]
  - Neuroleptic malignant syndrome [Recovered/Resolved]

NARRATIVE: CASE EVENT DATE: 20240731
